FAERS Safety Report 14376033 (Version 17)
Quarter: 2019Q2

REPORT INFORMATION
  Report Type: Spontaneous
  Country: CA (occurrence: CA)
  Receive Date: 20180111
  Receipt Date: 20190620
  Transmission Date: 20190711
  Serious: Yes (Other)
  Sender: FDA-Public Use
  Company Number: CA-CELLTRION INC.-2017CA011909

PATIENT

DRUGS (21)
  1. INFLECTRA [Suspect]
     Active Substance: INFLIXIMAB-DYYB
     Dosage: 200 MG, (EVERY 6 WEEKS)
     Route: 042
     Dates: start: 20170828, end: 20180325
  2. INFLECTRA [Suspect]
     Active Substance: INFLIXIMAB-DYYB
     Dosage: 200 MG, (EVERY 4 WEEKS)
     Route: 042
     Dates: start: 20180912
  3. INFLECTRA [Suspect]
     Active Substance: INFLIXIMAB-DYYB
     Dosage: 200 MG (EVERY 4 WEEKS)
     Route: 042
     Dates: start: 20181009
  4. TYLENOL [Concomitant]
     Active Substance: ACETAMINOPHEN
     Dosage: 650 MG, UNK
     Route: 048
     Dates: start: 20190402, end: 20190402
  5. INFLECTRA [Suspect]
     Active Substance: INFLIXIMAB-DYYB
     Dosage: 200 MG, (EVERY 4 WEEKS)
     Route: 042
     Dates: start: 20180814, end: 20180814
  6. INFLECTRA [Suspect]
     Active Substance: INFLIXIMAB-DYYB
     Dosage: 200 MG (EVERY 4 WEEKS)
     Route: 042
     Dates: start: 20190205
  7. INFLECTRA [Suspect]
     Active Substance: INFLIXIMAB-DYYB
     Dosage: 200 MG (EVERY 4 WEEKS)
     Route: 042
     Dates: start: 20190304
  8. CELEBREX [Concomitant]
     Active Substance: CELECOXIB
     Dosage: UNK, AS NEEDED
  9. TYLENOL [Concomitant]
     Active Substance: ACETAMINOPHEN
     Indication: PREMEDICATION
     Dosage: 1 G, UNK
     Route: 048
     Dates: start: 20190205, end: 20190205
  10. INFLECTRA [Suspect]
     Active Substance: INFLIXIMAB-DYYB
     Dosage: 5 MG/KG,Q 0, 2, 6 WEEKS, THEN EVERY 8 WEEKS
     Route: 042
     Dates: start: 20170601, end: 20170713
  11. INFLECTRA [Suspect]
     Active Substance: INFLIXIMAB-DYYB
     Dosage: 200 MG, (EVERY 6 WEEKS)
     Route: 042
     Dates: start: 20180104, end: 20180104
  12. INFLECTRA [Suspect]
     Active Substance: INFLIXIMAB-DYYB
     Dosage: 200 MG, UNK
     Route: 042
     Dates: start: 20180329, end: 20180329
  13. INFLECTRA [Suspect]
     Active Substance: INFLIXIMAB-DYYB
     Dosage: 200 MG, (EVERY 6 WEEKS)
     Route: 042
     Dates: start: 20180215, end: 20180215
  14. INFLECTRA [Suspect]
     Active Substance: INFLIXIMAB-DYYB
     Dosage: 200 MG, (EVERY 4 WEEKS)
     Route: 042
     Dates: start: 20180426
  15. ACETAMINOPHEN. [Concomitant]
     Active Substance: ACETAMINOPHEN
     Dosage: 1 G, UNK
     Route: 048
  16. INFLECTRA [Suspect]
     Active Substance: INFLIXIMAB-DYYB
     Dosage: 200 MG, (EVERY 6 WEEKS)
     Route: 042
     Dates: start: 20171116, end: 20171116
  17. INFLECTRA [Suspect]
     Active Substance: INFLIXIMAB-DYYB
     Dosage: 200 MG (EVERY 4 WEEKS)
     Route: 042
     Dates: start: 20181106
  18. INFLECTRA [Suspect]
     Active Substance: INFLIXIMAB-DYYB
     Dosage: 200 MG (EVERY 4 WEEKS)
     Route: 042
     Dates: start: 20190103
  19. INFLECTRA [Suspect]
     Active Substance: INFLIXIMAB-DYYB
     Indication: ANKYLOSING SPONDYLITIS
     Dosage: 200 MG, (EVERY 6 WEEKS)
     Route: 042
     Dates: start: 20170601
  20. INFLECTRA [Suspect]
     Active Substance: INFLIXIMAB-DYYB
     Dosage: 200 MG (EVERY 4 WEEKS)
     Route: 042
     Dates: start: 20190402, end: 20190402
  21. METHOTREXATE. [Concomitant]
     Active Substance: METHOTREXATE
     Dosage: 25 MG, WEEKLY

REACTIONS (18)
  - Bronchitis [Unknown]
  - Erythema [Unknown]
  - Off label use [Unknown]
  - Skin burning sensation [Unknown]
  - Heart rate irregular [Unknown]
  - Therapeutic product effect decreased [Unknown]
  - Oropharyngeal pain [Recovering/Resolving]
  - Product use issue [Unknown]
  - Nasopharyngitis [Unknown]
  - Blood pressure fluctuation [Unknown]
  - Nasal congestion [Unknown]
  - Fatigue [Recovered/Resolved]
  - Nausea [Recovered/Resolved]
  - Sinusitis [Recovering/Resolving]
  - Uveitis [Recovered/Resolved]
  - Cataract [Not Recovered/Not Resolved]
  - Retinal detachment [Unknown]
  - Drug level increased [Not Recovered/Not Resolved]

NARRATIVE: CASE EVENT DATE: 20170601
